FAERS Safety Report 6615868-8 (Version None)
Quarter: 2010Q1

REPORT INFORMATION
  Report Type: 
  Country: None (occurrence: None)
  Receive Date: 20100305
  Receipt Date: 20100301
  Transmission Date: 20100710
  Serious: Yes (Other)
  Sender: FDA-Public Use
  Company Number: AU-WYE-G05613310

PATIENT
  Sex: Male
  Weight: 60 kg

DRUGS (1)
  1. REFACTO [Suspect]
     Indication: FACTOR VIII DEFICIENCY
     Dosage: 3000IU, STARTED 2-3 YEARS AGO, SUSPECT BATCH IN DEC-2009 TO JAN-2010 FOR 2-3 WKS, THEN NEW BATCH

REACTIONS (2)
  - DRUG EFFECT DECREASED [None]
  - INCORRECT PRODUCT STORAGE [None]
